FAERS Safety Report 20401871 (Version 1)
Quarter: 2022Q1

REPORT INFORMATION
  Report Type: Spontaneous
  Country: US (occurrence: US)
  Receive Date: 20220131
  Receipt Date: 20220131
  Transmission Date: 20220423
  Serious: No
  Sender: FDA-Public Use
  Company Number: US-drreddys-SPO/USA/22/0146168

PATIENT
  Age: 18 Year
  Sex: Female

DRUGS (1)
  1. ZENATANE [Suspect]
     Active Substance: ISOTRETINOIN
     Indication: Product used for unknown indication
     Dosage: RMA ISSUE DATE: 15 SEPTEMBER 2021 01:21:55 PM, 19 OCTOBER 2021 12:10:01 PM, 15 NOVEMBER 2021 11:09:0

REACTIONS (1)
  - Hepatic enzyme increased [Unknown]
